FAERS Safety Report 6283201-X (Version None)
Quarter: 2009Q3

REPORT INFORMATION
  Report Type: 
  Country: None (occurrence: None)
  Receive Date: 20090724
  Receipt Date: 20090715
  Transmission Date: 20100115
  Serious: Yes (Hospitalization)
  Sender: FDA-Public Use
  Company Number: DE-TEVA-202650ISR

PATIENT
  Age: 77 Year
  Sex: Female

DRUGS (6)
  1. PANTOPRAZOLE SODIUM [Suspect]
     Indication: HELICOBACTER GASTRITIS
     Route: 048
     Dates: start: 20090130
  2. AMOXICILLIN TRIHYDRATE [Interacting]
     Indication: HELICOBACTER GASTRITIS
     Route: 048
     Dates: start: 20090130, end: 20090211
  3. MOXIFLOXACIN HYDROCHLORIDE [Interacting]
     Indication: BRONCHITIS
     Route: 048
     Dates: start: 20090106, end: 20090111
  4. CIPROFLOXACIN [Interacting]
     Indication: URINARY TRACT INFECTION
     Route: 048
     Dates: start: 20090205, end: 20090208
  5. CLARITHROMYCIN [Interacting]
     Indication: HELICOBACTER GASTRITIS
     Route: 048
     Dates: start: 20090130, end: 20090211
  6. ROXITHROMYCIN [Interacting]
     Indication: RESPIRATORY TRACT INFECTION
     Route: 048
     Dates: start: 20090123, end: 20090130

REACTIONS (1)
  - CLOSTRIDIUM DIFFICILE COLITIS [None]
